FAERS Safety Report 18500393 (Version 1)
Quarter: 2020Q4

REPORT INFORMATION
  Report Type: Spontaneous
  Country: US (occurrence: US)
  Receive Date: 20201113
  Receipt Date: 20201113
  Transmission Date: 20210114
  Serious: No
  Sender: FDA-Public Use
  Company Number: US-TEVA-2020-US-1848013

PATIENT
  Sex: Female

DRUGS (2)
  1. LORAZEPAM. [Suspect]
     Active Substance: LORAZEPAM
     Route: 065
  2. VITAMINS [Concomitant]
     Active Substance: VITAMINS

REACTIONS (3)
  - Urticaria [Recovered/Resolved]
  - Product use in unapproved indication [Unknown]
  - Feeling abnormal [Not Recovered/Not Resolved]
